FAERS Safety Report 20203998 (Version 9)
Quarter: 2022Q4

REPORT INFORMATION
  Report Type: Report from Study
  Country: US (occurrence: US)
  Receive Date: 20211219
  Receipt Date: 20221013
  Transmission Date: 20230112
  Serious: Yes (Hospitalization, Other)
  Sender: FDA-Public Use
  Company Number: US-NOVARTISTESTPH-NVSC2021US291036

PATIENT
  Age: 84 Year
  Sex: Female
  Weight: 80.28 kg

DRUGS (2)
  1. ENTRESTO [Suspect]
     Active Substance: SACUBITRIL\VALSARTAN
     Indication: Cardiac failure
     Dosage: 200 MG, BID (97/103)
     Route: 048
     Dates: start: 2018
  2. ENTRESTO [Suspect]
     Active Substance: SACUBITRIL\VALSARTAN
     Dosage: UNK
     Route: 048

REACTIONS (8)
  - Upper respiratory tract infection [Unknown]
  - Cough [Recovering/Resolving]
  - Myocardial infarction [Unknown]
  - Hypertension [Recovering/Resolving]
  - Hypoacusis [Unknown]
  - Dyspnoea [Unknown]
  - Hypersensitivity [Unknown]
  - Asthenia [Unknown]

NARRATIVE: CASE EVENT DATE: 20220328
